FAERS Safety Report 4971188-9 (Version None)
Quarter: 2006Q1

REPORT INFORMATION
  Report Type: 
  Country: None (occurrence: None)
  Receive Date: 20060216
  Receipt Date: 20030924
  Transmission Date: 20060701
  Serious: Yes (Hospitalization)
  Sender: FDA-Public Use
  Company Number: 2003IM000875

PATIENT
  Age: 61 Year
  Sex: Female
  Weight: 49.5 kg

DRUGS (7)
  1. INTERFERON GAMMA-1B [Suspect]
     Indication: OVARIAN CANCER
     Dosage: 100 UG, TIW, SUBCUTANEOUS
     Route: 058
     Dates: start: 20030714, end: 20030818
  2. CARBOPLATIN [Suspect]
     Indication: OVARIAN CANCER
     Dosage: 570 MG, Q3W, INTRAVENOUS
     Route: 042
     Dates: start: 20030714, end: 20030804
  3. PACLITAXEL [Suspect]
     Indication: OVARIAN CANCER
     Dosage: 250 MG, Q3W, INTRAVENOUS
     Route: 042
     Dates: start: 20030714, end: 20030804
  4. LITHIUM [Concomitant]
  5. PAXIL [Concomitant]
  6. SYNTHROID [Concomitant]
  7. AMITRIPTYLINE HCL [Concomitant]

REACTIONS (1)
  - FEBRILE NEUTROPENIA [None]
